FAERS Safety Report 13709796 (Version 3)
Quarter: 2017Q3

REPORT INFORMATION
  Report Type: Report from Study
  Country: US (occurrence: US)
  Receive Date: 20170703
  Receipt Date: 20170925
  Transmission Date: 20171127
  Serious: No
  Sender: FDA-Public Use
  Company Number: US-VIFOR (INTERNATIONAL) INC.-VIT-2017-03717

PATIENT
  Sex: Male
  Weight: 186 kg

DRUGS (23)
  1. VELTASSA [Suspect]
     Active Substance: PATIROMER
     Route: 048
     Dates: start: 20170520
  2. GABAPENTIN. [Concomitant]
     Active Substance: GABAPENTIN
  3. ATORVASTATIN [Concomitant]
     Active Substance: ATORVASTATIN
  4. CALCITRIOL. [Concomitant]
     Active Substance: CALCITRIOL
  5. RANITIDINE. [Concomitant]
     Active Substance: RANITIDINE
  6. CEFPODOXIME [Concomitant]
     Active Substance: CEFPODOXIME
  7. SERTRALINE [Concomitant]
     Active Substance: SERTRALINE HYDROCHLORIDE
  8. CLINDAMYCIN. [Concomitant]
     Active Substance: CLINDAMYCIN
  9. VELTASSA [Suspect]
     Active Substance: PATIROMER
     Route: 048
     Dates: start: 20170303
  10. GABAPENTIN. [Concomitant]
     Active Substance: GABAPENTIN
  11. WARFARIN [Concomitant]
     Active Substance: WARFARIN
  12. VELTASSA [Suspect]
     Active Substance: PATIROMER
     Indication: HYPERKALAEMIA
     Route: 048
     Dates: start: 20170224
  13. SERTRALINE [Concomitant]
     Active Substance: SERTRALINE HYDROCHLORIDE
  14. VANCOMYCIN [Concomitant]
     Active Substance: VANCOMYCIN
  15. NORCO [Concomitant]
     Active Substance: ACETAMINOPHEN\HYDROCODONE BITARTRATE
  16. GABAPENTIN. [Concomitant]
     Active Substance: GABAPENTIN
  17. TAMSULOSIN [Concomitant]
     Active Substance: TAMSULOSIN
  18. HYDROCODONE BITARTRATE AND ACETAMINOPHEN [Concomitant]
     Active Substance: ACETAMINOPHEN\HYDROCODONE BITARTRATE
     Dosage: 10-325 MG
  19. FLUCONAZOLE. [Concomitant]
     Active Substance: FLUCONAZOLE
  20. SERTRALINE [Concomitant]
     Active Substance: SERTRALINE HYDROCHLORIDE
  21. LANTUS SOLOSTAR [Concomitant]
     Active Substance: INSULIN GLARGINE
  22. HUMALOG KWIK [Concomitant]
  23. PANTOPRAZOLE [Concomitant]
     Active Substance: PANTOPRAZOLE

REACTIONS (1)
  - Flatulence [Recovering/Resolving]

NARRATIVE: CASE EVENT DATE: 2017
